FAERS Safety Report 16561258 (Version 1)
Quarter: 2019Q3

REPORT INFORMATION
  Report Type: Spontaneous
  Country: FR (occurrence: FR)
  Receive Date: 20190711
  Receipt Date: 20190711
  Transmission Date: 20191004
  Serious: Yes (Death, Other)
  Sender: FDA-Public Use
  Company Number: FR-PFIZER INC-2019297375

PATIENT
  Age: 8 Year
  Sex: Female

DRUGS (38)
  1. VINCRISTINE SULFATE. [Suspect]
     Active Substance: VINCRISTINE SULFATE
     Indication: EMBRYONAL RHABDOMYOSARCOMA
     Dosage: UNK (CURE 1: D1)
     Dates: start: 20160217
  2. VINCRISTINE SULFATE. [Suspect]
     Active Substance: VINCRISTINE SULFATE
     Dosage: UNK (CURE 3: D1)
     Dates: start: 20160330
  3. VINCRISTINE SULFATE. [Suspect]
     Active Substance: VINCRISTINE SULFATE
     Dosage: UNK (CURE 6: D1)
     Dates: start: 20160604
  4. HOLOXAN [Suspect]
     Active Substance: IFOSFAMIDE
     Dosage: UNK (CURE 6: D1)
     Dates: start: 20160604
  5. HOLOXAN [Suspect]
     Active Substance: IFOSFAMIDE
     Dosage: UNK (CURE 9: D1)
     Dates: start: 20160816
  6. NAVELBINE [Suspect]
     Active Substance: VINORELBINE TARTRATE
     Dosage: UNK
  7. ACTINOMYCIN D [Suspect]
     Active Substance: DACTINOMYCIN
     Dosage: UNK (CURE 8: D1)
     Dates: start: 20160718
  8. VINCRISTINE SULFATE. [Suspect]
     Active Substance: VINCRISTINE SULFATE
     Dosage: UNK (CURE 5: D1)
     Dates: start: 20160512
  9. ACTINOMYCIN D [Suspect]
     Active Substance: DACTINOMYCIN
     Indication: EMBRYONAL RHABDOMYOSARCOMA
     Dosage: UNK (CURE 1: D1)
     Dates: start: 20160217
  10. RIVOTRIL [Concomitant]
     Active Substance: CLONAZEPAM
     Dosage: UNK, AS NEEDED
  11. MICROPAKINE [Concomitant]
     Active Substance: VALPROATE SODIUM
     Dosage: 200 MG, 1X/DAY
  12. VINCRISTINE SULFATE. [Suspect]
     Active Substance: VINCRISTINE SULFATE
     Dosage: UNK (CURE 2: D1)
     Dates: start: 20160309
  13. HOLOXAN [Suspect]
     Active Substance: IFOSFAMIDE
     Dosage: UNK (CURE 5: D1)
     Dates: start: 20160512
  14. HOLOXAN [Suspect]
     Active Substance: IFOSFAMIDE
     Dosage: UNK (CURE 8: D1)
     Dates: start: 20160718
  15. PARACETAMOL [Concomitant]
     Active Substance: ACETAMINOPHEN
     Dosage: UNK, AS NEEDED
  16. HOLOXAN [Suspect]
     Active Substance: IFOSFAMIDE
     Indication: EMBRYONAL RHABDOMYOSARCOMA
     Dosage: UNK (CURE 1: D1)
     Dates: start: 20160217
  17. HOLOXAN [Suspect]
     Active Substance: IFOSFAMIDE
     Dosage: UNK (CURE 7: D1)
     Dates: start: 20160625
  18. ACTINOMYCIN D [Suspect]
     Active Substance: DACTINOMYCIN
     Dosage: UNK (CURE 3: D1)
     Dates: start: 20160330
  19. ACTINOMYCIN D [Suspect]
     Active Substance: DACTINOMYCIN
     Dosage: UNK (CURE 9: D1)
     Dates: start: 20160816
  20. HOLOXAN [Suspect]
     Active Substance: IFOSFAMIDE
     Dosage: UNK (CURE 3: D1)
     Dates: start: 20160330
  21. ENDOXAN [CYCLOPHOSPHAMIDE MONOHYDRATE] [Suspect]
     Active Substance: CYCLOPHOSPHAMIDE
     Indication: EMBRYONAL RHABDOMYOSARCOMA
     Dosage: 21 MG, 1X/DAY
     Dates: start: 20161006
  22. ACTINOMYCIN D [Suspect]
     Active Substance: DACTINOMYCIN
     Dosage: UNK (CURE 2: D1)
     Dates: start: 20160309
  23. ACTINOMYCIN D [Suspect]
     Active Substance: DACTINOMYCIN
     Dosage: UNK (CURE OF ACTINOMYCINE 2)
     Dates: start: 20160920
  24. MORPHINE [Suspect]
     Active Substance: MORPHINE
     Indication: HEADACHE
     Dosage: UNK
     Dates: start: 20161107
  25. VINCRISTINE SULFATE. [Suspect]
     Active Substance: VINCRISTINE SULFATE
     Dosage: UNK (CURE 8: D1)
     Dates: start: 20160718
  26. HOLOXAN [Suspect]
     Active Substance: IFOSFAMIDE
     Dosage: UNK (CURE 2: D1)
     Dates: start: 20160309
  27. ACTINOMYCIN D [Suspect]
     Active Substance: DACTINOMYCIN
     Dosage: UNK (CURE OF ACTINOMYCINE 1)
     Dates: start: 20160906
  28. VINCRISTINE SULFATE. [Suspect]
     Active Substance: VINCRISTINE SULFATE
     Dosage: UNK (CURE 7: D1)
     Dates: start: 20160625
  29. NAVELBINE [Suspect]
     Active Substance: VINORELBINE TARTRATE
     Indication: EMBRYONAL RHABDOMYOSARCOMA
     Dosage: 21 MG, WEEKLY (CYCLE 1 DAY 1)
     Dates: start: 20161006, end: 20161021
  30. VINCRISTINE SULFATE. [Suspect]
     Active Substance: VINCRISTINE SULFATE
     Dosage: UNK (CURE 4: D1)
     Dates: start: 20160420
  31. VINCRISTINE SULFATE. [Suspect]
     Active Substance: VINCRISTINE SULFATE
     Dosage: UNK (CURE 9: D1)
     Dates: start: 20160816
  32. HOLOXAN [Suspect]
     Active Substance: IFOSFAMIDE
     Dosage: UNK (CURE 4: D1)
     Dates: start: 20160420
  33. ENDOXAN [CYCLOPHOSPHAMIDE MONOHYDRATE] [Suspect]
     Active Substance: CYCLOPHOSPHAMIDE
     Dosage: AT DINNER
     Dates: start: 20161104
  34. ENDOXAN [CYCLOPHOSPHAMIDE MONOHYDRATE] [Suspect]
     Active Substance: CYCLOPHOSPHAMIDE
     Dosage: AT DINNER
     Dates: start: 20161105
  35. ENDOXAN [CYCLOPHOSPHAMIDE MONOHYDRATE] [Suspect]
     Active Substance: CYCLOPHOSPHAMIDE
     Dosage: AT DINNER
     Dates: start: 20161106
  36. ACTINOMYCIN D [Suspect]
     Active Substance: DACTINOMYCIN
     Dosage: UNK (CURE 4: D1)
     Dates: start: 20160420
  37. ACTINOMYCIN D [Suspect]
     Active Substance: DACTINOMYCIN
     Dosage: UNK (CURE 5: D1)
     Dates: start: 20160512
  38. ZOPHREN [ONDANSETRON] [Concomitant]
     Active Substance: ONDANSETRON
     Dosage: UNK

REACTIONS (9)
  - Headache [Fatal]
  - Neoplasm progression [Unknown]
  - Dyspnoea [Unknown]
  - Epistaxis [Unknown]
  - Bradypnoea [Fatal]
  - Epilepsy [Fatal]
  - Arrhythmia [Fatal]
  - Vomiting [Fatal]
  - Muscle spasms [Unknown]

NARRATIVE: CASE EVENT DATE: 20160801
